FAERS Safety Report 12723444 (Version 2)
Quarter: 2016Q3

REPORT INFORMATION
  Report Type: Spontaneous
  Country: US (occurrence: US)
  Receive Date: 20160908
  Receipt Date: 20160922
  Transmission Date: 20161109
  Serious: No
  Sender: FDA-Public Use
  Company Number: US-BAYER-2016-174347

PATIENT
  Age: 37 Year
  Sex: Female
  Weight: 79 kg

DRUGS (3)
  1. ONE-A-DAY VITACRAVES HEALTHY METABOLISM SUPPORT [Suspect]
     Active Substance: MINERALS\VITAMINS
     Indication: METABOLIC DISORDER
     Dosage: UNK
  2. ALEVE PM [Suspect]
     Active Substance: DIPHENHYDRAMINE HYDROCHLORIDE\NAPROXEN SODIUM
     Dosage: UNK
     Route: 048
  3. ALEVE [Suspect]
     Active Substance: NAPROXEN SODIUM
     Dosage: UNK
     Route: 048

REACTIONS (4)
  - Product odour abnormal [Unknown]
  - Throat irritation [Unknown]
  - Product use issue [Unknown]
  - Product taste abnormal [None]
